FAERS Safety Report 10618639 (Version 1)
Quarter: 2014Q4

REPORT INFORMATION
  Report Type: Spontaneous
  Country: FR (occurrence: None)
  Receive Date: 20141125
  Receipt Date: 20141125
  Transmission Date: 20150529
  Serious: No
  Sender: FDA-Public Use
  Company Number: FR2014GSK023679

PATIENT
  Age: 64 Year
  Sex: Male

DRUGS (3)
  1. KIVEXA [Suspect]
     Active Substance: ABACAVIR SULFATE\LAMIVUDINE
     Indication: HIV INFECTION
     Dosage: 1D, ORAL
     Route: 048
     Dates: start: 20120202
  2. NORVIR [Suspect]
     Active Substance: RITONAVIR
     Indication: HIV INFECTION
     Route: 048
     Dates: start: 20120202, end: 20140401
  3. PREZISTA [Suspect]
     Active Substance: DARUNAVIR ETHANOLATE
     Indication: HIV INFECTION
     Dosage: 1 UNK
     Route: 048
     Dates: start: 20120202, end: 20140401

REACTIONS (1)
  - Dyslipidaemia [None]

NARRATIVE: CASE EVENT DATE: 2012
